FAERS Safety Report 7969251-3 (Version None)
Quarter: 2011Q4

REPORT INFORMATION
  Report Type: 
  Country: None (occurrence: None)
  Receive Date: 20111209
  Receipt Date: 20111130
  Transmission Date: 20120403
  Serious: Yes (Other)
  Sender: FDA-Public Use
  Company Number: BR-ASTRAZENECA-2011SE73201

PATIENT
  Age: 2 Year
  Sex: Male
  Weight: 12 kg

DRUGS (1)
  1. ATACAND [Suspect]
     Dosage: ONE TABLET ACCIDENTLY INGESTED
     Route: 048
     Dates: start: 20111126, end: 20111126

REACTIONS (1)
  - ACCIDENTAL DRUG INTAKE BY CHILD [None]
